FAERS Safety Report 6419220-X (Version None)
Quarter: 2009Q4

REPORT INFORMATION
  Report Type: 
  Country: None (occurrence: None)
  Receive Date: 20091029
  Receipt Date: 20091019
  Transmission Date: 20100525
  Serious: Yes (Hospitalization)
  Sender: FDA-Public Use
  Company Number: DE-JNJFOC-20091000205

PATIENT
  Age: 79 Year
  Sex: Female
  Weight: 74 kg

DRUGS (19)
  1. REMICADE [Suspect]
     Indication: RHEUMATOID ARTHRITIS
     Dosage: RECEIVED APPROXIMATELY 24 INFUSIONS
     Route: 042
     Dates: start: 20050301, end: 20090605
  2. L-THYROXIN [Concomitant]
  3. FOSAMAX [Concomitant]
  4. METEX [Concomitant]
  5. FOLIC ACID [Concomitant]
  6. CALCIUM [Concomitant]
  7. VIGANTOLETTEN [Concomitant]
  8. CORTISON [Concomitant]
  9. BERODUAL [Concomitant]
  10. GELOMYRTOL FORTE [Concomitant]
  11. FURO PUREN [Concomitant]
     Indication: OEDEMA
  12. NOVO NORM [Concomitant]
     Indication: DIABETES MELLITUS
  13. OMEPRAZOLE [Concomitant]
     Indication: GASTRITIS
  14. NOVALGIN [Concomitant]
  15. E VITAMIN [Concomitant]
  16. AEROBEC [Concomitant]
     Dosage: 250 DOSIER AEROSOL 2 QD
  17. SALMETEROL INHALER [Concomitant]
  18. PREDNISONE TAB [Concomitant]
  19. OTHER THERAPEUTIC PRODUCT UNSPECIFIED [Concomitant]
     Indication: OSTEOPOROSIS

REACTIONS (1)
  - B-CELL LYMPHOMA [None]
